FAERS Safety Report 6060957-2 (Version None)
Quarter: 2009Q1

REPORT INFORMATION
  Report Type: 
  Country: None (occurrence: None)
  Receive Date: 20090202
  Receipt Date: 20090121
  Transmission Date: 20090719
  Serious: Yes (Other)
  Sender: FDA-Public Use
  Company Number: US-ROCHE-597152

PATIENT
  Sex: Female
  Weight: 63.5 kg

DRUGS (13)
  1. BONIVA [Suspect]
     Indication: OSTEOPOROSIS
     Dosage: FORM: PREFILLED SYRINGE, DOSE 3MG/ 3 ML
     Route: 042
     Dates: start: 20060816, end: 20070101
  2. CYMBALTA [Concomitant]
     Indication: DEPRESSION
     Dosage: DAILY
     Route: 048
     Dates: start: 20061025
  3. ATIVAN [Concomitant]
     Indication: ANXIETY
     Dosage: DOSAGE REGIMEN: Q6H PRN
     Route: 048
     Dates: start: 20071201
  4. AMBIEN CR [Concomitant]
     Indication: SLEEP DISORDER
     Dosage: DOSAGE REGIMEN: AS PRN
     Route: 048
     Dates: start: 20071201
  5. TUMS [Concomitant]
     Dates: start: 20020413
  6. ASPIRIN [Concomitant]
     Dosage: DRUG REPORTED: ASPIRIN-LOW DOSE
     Dates: start: 20020413
  7. TYLENOL (CAPLET) [Concomitant]
     Dosage: DOSE: 500/ 25, FREQUENCY: HS
     Dates: start: 20041201
  8. LOTREL [Concomitant]
     Dosage: DOSE: 5/ 10, FREQUENCY: QD
     Dates: start: 20050216
  9. PRILOSEC [Concomitant]
     Dosage: DRUG: PRILOSEC OTC
     Dates: start: 20060421
  10. SKELAXIN [Concomitant]
     Dosage: FREQUENCY: PRN
     Dates: start: 20061221
  11. CYMBALTA [Concomitant]
     Dates: start: 20061221
  12. CYMBALTA [Concomitant]
     Dates: start: 20070328
  13. VITAMINE D [Concomitant]
     Dosage: DOSE: 50 0000
     Dates: start: 20070328

REACTIONS (6)
  - ARTHRALGIA [None]
  - BONE PAIN [None]
  - DRY MOUTH [None]
  - LOWER LIMB FRACTURE [None]
  - MYALGIA [None]
  - URINARY TRACT INFECTION [None]
